FAERS Safety Report 8849797 (Version 1)
Quarter: 2012Q4

REPORT INFORMATION
  Report Type: 
  Country: US (occurrence: US)
  Receive Date: 20121019
  Receipt Date: 20121019
  Transmission Date: 20130627
  Serious: No
  Sender: FDA-Public Use
  Company Number: US-PURDUE-USA-2012-0094312

PATIENT
  Sex: Female

DRUGS (1)
  1. BUTRANS [Suspect]
     Indication: PRODUCT USED FOR UNKNOWN INDICATION
     Dosage: 10 mcg, UNK
     Route: 062

REACTIONS (5)
  - Application site burn [Unknown]
  - Application site pruritus [Unknown]
  - Application site pain [Unknown]
  - Application site vesicles [Unknown]
  - Product quality issue [Unknown]
